FAERS Safety Report 7957086-7 (Version None)
Quarter: 2011Q4

REPORT INFORMATION
  Report Type: 
  Country: None (occurrence: None)
  Receive Date: 20111205
  Receipt Date: 20111202
  Transmission Date: 20120403
  Serious: No
  Sender: FDA-Public Use
  Company Number: US-B.I. PHARMACEUTICALS,INC./RIDGEFIELD-2011-BP-26859BP

PATIENT
  Sex: Female

DRUGS (4)
  1. SPIRIVA [Suspect]
     Dosage: 18 MCG
     Route: 048
     Dates: start: 20111127, end: 20111127
  2. PREMPRO [Concomitant]
  3. SPIRIVA [Suspect]
     Indication: CHRONIC OBSTRUCTIVE PULMONARY DISEASE
     Dosage: 18 MCG
     Route: 055
     Dates: start: 20100101
  4. BUDESONIDE [Concomitant]

REACTIONS (2)
  - OESOPHAGEAL CANDIDIASIS [None]
  - INCORRECT ROUTE OF DRUG ADMINISTRATION [None]
